FAERS Safety Report 19699557 (Version 4)
Quarter: 2023Q4

REPORT INFORMATION
  Report Type: Spontaneous
  Country: US (occurrence: US)
  Receive Date: 20210813
  Receipt Date: 20231130
  Transmission Date: 20240110
  Serious: Yes (Other)
  Sender: FDA-Public Use
  Company Number: US-PFIZER INC-202101005474

PATIENT
  Age: 56 Year
  Sex: Female
  Weight: 118.37 kg

DRUGS (3)
  1. INLYTA [Suspect]
     Active Substance: AXITINIB
     Indication: Renal cancer
     Dosage: UNK
     Dates: start: 20210422
  2. INLYTA [Suspect]
     Active Substance: AXITINIB
     Dosage: 3 MG, 2X/DAY (TAKE 3 TABLETS (3 MG) TWICE DAILY)
     Dates: start: 20210614
  3. INLYTA [Suspect]
     Active Substance: AXITINIB
     Dosage: 5 MG, 2X/DAY 12 HOURS APART
     Route: 048
     Dates: start: 20210618

REACTIONS (12)
  - Renal impairment [Unknown]
  - Dental care [Recovered/Resolved]
  - Weight decreased [Unknown]
  - Thyroid function test abnormal [Unknown]
  - Eyelid pain [Unknown]
  - Rhinalgia [Unknown]
  - Oral pain [Unknown]
  - Genital discomfort [Unknown]
  - Genital rash [Unknown]
  - Stomatitis [Unknown]
  - Glossitis [Unknown]
  - Skin disorder [Recovered/Resolved]

NARRATIVE: CASE EVENT DATE: 20210101
